FAERS Safety Report 6767276-7 (Version None)
Quarter: 2010Q2

REPORT INFORMATION
  Report Type: 
  Country: None (occurrence: None)
  Receive Date: 20100614
  Receipt Date: 20100608
  Transmission Date: 20101027
  Serious: Yes (Hospitalization)
  Sender: FDA-Public Use
  Company Number: TR-BAXTER-2010BH015493

PATIENT
  Age: 8 Month
  Sex: Male
  Weight: 7 kg

DRUGS (3)
  1. GAMMAGARD LIQUID [Suspect]
     Indication: COMBINED IMMUNODEFICIENCY
     Route: 065
     Dates: start: 20100608, end: 20100608
  2. GAMMAGARD LIQUID [Suspect]
     Indication: HYPOGAMMAGLOBULINAEMIA
     Route: 065
     Dates: start: 20100608, end: 20100608
  3. GAMMAGARD LIQUID [Suspect]
     Indication: PRIMARY IMMUNODEFICIENCY SYNDROME
     Route: 065
     Dates: start: 20100608, end: 20100608

REACTIONS (5)
  - ERYTHEMA [None]
  - PYREXIA [None]
  - RASH [None]
  - RESPIRATORY DISTRESS [None]
  - VOMITING [None]
